FAERS Safety Report 21449580 (Version 2)
Quarter: 2022Q4

REPORT INFORMATION
  Report Type: Spontaneous
  Country: JP (occurrence: JP)
  Receive Date: 20221013
  Receipt Date: 20221110
  Transmission Date: 20230112
  Serious: Yes (Other)
  Sender: FDA-Public Use
  Company Number: JP-NOVARTISPH-NVSJ2022JP098689

PATIENT
  Age: 75 Year
  Sex: Male

DRUGS (1)
  1. NEORAL [Suspect]
     Active Substance: CYCLOSPORINE
     Indication: Plasma cell myeloma
     Dosage: UNK
     Route: 048
     Dates: start: 2015

REACTIONS (5)
  - Bowen^s disease [Recovered/Resolved]
  - Rash [Unknown]
  - Skin mass [Recovering/Resolving]
  - Skin plaque [Unknown]
  - Lung opacity [Unknown]

NARRATIVE: CASE EVENT DATE: 20180501
